FAERS Safety Report 12528669 (Version 2)
Quarter: 2016Q3

REPORT INFORMATION
  Report Type: Spontaneous
  Country: IN (occurrence: IN)
  Receive Date: 20160705
  Receipt Date: 20160720
  Transmission Date: 20161109
  Serious: Yes (Other)
  Sender: FDA-Public Use
  Company Number: IN-WATSON-2016-14423

PATIENT
  Age: 45 Year
  Sex: Male

DRUGS (2)
  1. ITRACONAZOLE (UNKNOWN) [Interacting]
     Active Substance: ITRACONAZOLE
     Indication: BRONCHOPULMONARY ASPERGILLOSIS ALLERGIC
     Dosage: 400 MG, DAILY
     Route: 065
  2. METHYLPREDNISOLONE (UNKNOWN) [Suspect]
     Active Substance: METHYLPREDNISOLONE
     Indication: BRONCHOPULMONARY ASPERGILLOSIS ALLERGIC
     Dosage: 24 MG, DAILY
     Route: 048

REACTIONS (4)
  - Acute respiratory failure [Recovered/Resolved]
  - Bronchopulmonary aspergillosis [Recovering/Resolving]
  - Drug interaction [Unknown]
  - Immunosuppression [Unknown]
